FAERS Safety Report 8651284 (Version 8)
Quarter: 2012Q4

REPORT INFORMATION
  Report Type: 
  Country: US (occurrence: US)
  Receive Date: 20120705
  Receipt Date: 20120829
  Transmission Date: 20130627
  Serious: Yes (Hospitalization, Other)
  Sender: FDA-Public Use
  Company Number: US-ASTRAZENECA-2012SE41879

PATIENT
  Age: 48 Year
  Sex: Male
  Weight: 70.3 kg

DRUGS (26)
  1. SEROQUEL XR [Suspect]
     Indication: MAJOR DEPRESSION
     Route: 048
  2. SEROQUEL XR [Suspect]
     Indication: MAJOR DEPRESSION
     Route: 048
     Dates: start: 2008
  3. DOXEPIN [Suspect]
     Route: 065
  4. OMEPRAZOLE [Concomitant]
     Route: 048
  5. ALBUTEROL [Concomitant]
     Dosage: 0.83 %
  6. VERAMYST [Concomitant]
  7. DULERA [Concomitant]
  8. VENTOLIN [Concomitant]
  9. ZYRTEC [Concomitant]
  10. CELEXA [Concomitant]
  11. DIAZEPAM VALIUM [Concomitant]
  12. ZOFRAN [Concomitant]
  13. SIMVASTATIN [Concomitant]
  14. ZANTAC [Concomitant]
  15. AZALASTINE [Concomitant]
  16. IMMUNOTHERAPY TREATMENT [Concomitant]
  17. VALIUM [Concomitant]
  18. IMITREX [Concomitant]
  19. CARAFATE [Concomitant]
  20. PRAMOSONE [Concomitant]
  21. GAVISCON [Concomitant]
  22. TYLENOL [Concomitant]
  23. BENADRYL [Concomitant]
  24. MELATONIN [Concomitant]
  25. DONNATAL [Concomitant]
  26. NACO3 [Concomitant]

REACTIONS (15)
  - Head injury [Unknown]
  - Memory impairment [Unknown]
  - Musculoskeletal discomfort [Unknown]
  - Depression [Unknown]
  - Cognitive disorder [Unknown]
  - Injury [Unknown]
  - Conversion disorder [Unknown]
  - Stress [Unknown]
  - Pain [Unknown]
  - Depression [Unknown]
  - Metabolic disorder [Unknown]
  - Oropharyngeal pain [Unknown]
  - Somnolence [Unknown]
  - Drug dose omission [Unknown]
  - Therapeutic response unexpected [Unknown]
